FAERS Safety Report 21983363 (Version 2)
Quarter: 2023Q1

REPORT INFORMATION
  Report Type: Report from Study
  Country: ES (occurrence: ES)
  Receive Date: 20230213
  Receipt Date: 20230216
  Transmission Date: 20230418
  Serious: Yes (Other)
  Sender: FDA-Public Use
  Company Number: ES-MYLANLABS-2023M1009677

PATIENT
  Age: 47 Year
  Sex: Male
  Weight: 106 kg

DRUGS (5)
  1. SIMVASTATIN [Suspect]
     Active Substance: SIMVASTATIN
     Indication: Product used for unknown indication
     Dosage: 20 MILLIGRAM, QD (1 TABLET EVERY 24 H)
  2. METFORMIN HYDROCHLORIDE\SITAGLIPTIN PHOSPHATE [Suspect]
     Active Substance: METFORMIN HYDROCHLORIDE\SITAGLIPTIN PHOSPHATE
     Indication: Product used for unknown indication
     Dosage: 1 DOSAGE FORM, BID, (Q 12 H)(DISCREPANT INFORMATION)
  3. BRIMONIDINE [Suspect]
     Active Substance: BRIMONIDINE TARTRATE
     Indication: Product used for unknown indication
     Dosage: 1 GTT DROPS, BID (1 DROP IN EACH EYE EVERY 12 H), STRENGTH: 20 MG/ML
  4. DORZOLAMIDE\TIMOLOL [Suspect]
     Active Substance: DORZOLAMIDE\TIMOLOL
     Indication: Product used for unknown indication
     Dosage: 1 GTT DROPS, BID (1 DROP IN EACH EYE EVERY 12H), STRENGTH:20 MG/ML + 5 MG/ML
  5. BIMATOPROST [Suspect]
     Active Substance: BIMATOPROST
     Indication: Product used for unknown indication
     Dosage: 1 DOSAGE FORM, BID (1 APPLICATION IN EACH EYE EVERY 12H)(DISCREPANT INFORMATION)

REACTIONS (4)
  - Renal impairment [Unknown]
  - Lipids abnormal [Unknown]
  - Nocturia [Unknown]
  - Hyperglycaemia [Unknown]
